FAERS Safety Report 8374700-5 (Version None)
Quarter: 2012Q2

REPORT INFORMATION
  Report Type: 
  Country: None (occurrence: None)
  Receive Date: 20120521
  Receipt Date: 20110509
  Transmission Date: 20120825
  Serious: No
  Sender: FDA-Public Use
  Company Number: US-ASTRAZENECA-2011SE28682

PATIENT
  Age: 58 Year
  Sex: Female

DRUGS (18)
  1. FUROSEMIDE [Concomitant]
  2. VITAMIN B6 [Concomitant]
  3. HYDROCHLOROTHIAZIDE [Concomitant]
  4. PRAVASTATIN [Concomitant]
  5. NEURONTIN [Concomitant]
  6. PRILOSEC OTC [Suspect]
     Route: 048
  7. POTASSIUM CHLORIDE [Concomitant]
  8. POTASSIUM CHLORIDE [Concomitant]
  9. HUMALOG [Concomitant]
  10. VICODIN [Concomitant]
  11. SYMBYAX [Concomitant]
  12. CINNAMON [Concomitant]
  13. METOPROLOL TARTRATE [Suspect]
  14. BACTROBAN [Concomitant]
  15. NYSTATIN [Concomitant]
  16. ACTOPLUS MET [Concomitant]
  17. PREDNISONE [Concomitant]
  18. ASPIRIN [Concomitant]

REACTIONS (5)
  - MUSCULOSKELETAL STIFFNESS [None]
  - ARTHRALGIA [None]
  - CELLULITIS STAPHYLOCOCCAL [None]
  - IMPAIRED WORK ABILITY [None]
  - PAIN IN EXTREMITY [None]
